FAERS Safety Report 6406268-4 (Version None)
Quarter: 2009Q4

REPORT INFORMATION
  Report Type: 
  Country: None (occurrence: None)
  Receive Date: 20091019
  Receipt Date: 20091006
  Transmission Date: 20100525
  Serious: Yes (Other)
  Sender: FDA-Public Use
  Company Number: PHHY2009BR43700

PATIENT
  Age: 55 Year
  Sex: Female

DRUGS (4)
  1. DIOVAN [Suspect]
     Indication: HYPERTENSION
     Dosage: 1 TABLET (160 MG) IN THE MORNING
     Route: 048
  2. DIOVAN [Suspect]
     Dosage: 320 MG
     Route: 048
  3. EUTHROID-1 [Concomitant]
     Indication: HYPERTHYROIDISM
     Dosage: 1 TABLET (100 UG) ON FASTING
  4. ISOFLAVONA [Concomitant]
     Indication: HORMONE REPLACEMENT THERAPY
     Dosage: 1 CAPSULE (120 MG) DAILY

REACTIONS (5)
  - BLOOD PRESSURE INADEQUATELY CONTROLLED [None]
  - DIABETES MELLITUS [None]
  - DYSPHONIA [None]
  - HYPERSENSITIVITY [None]
  - OEDEMA PERIPHERAL [None]
